FAERS Safety Report 9359368 (Version 1)
Quarter: 2013Q2

REPORT INFORMATION
  Report Type: Spontaneous
  Country: US (occurrence: US)
  Receive Date: 20130620
  Receipt Date: 20130620
  Transmission Date: 20140414
  Serious: No
  Sender: FDA-Public Use
  Company Number: US-009507513-1306USA009862

PATIENT
  Sex: Female

DRUGS (1)
  1. IMPLANON [Suspect]
     Dosage: 1 ROD, UNK
     Route: 059
     Dates: end: 201305

REACTIONS (2)
  - Menstruation irregular [Unknown]
  - Amenorrhoea [Not Recovered/Not Resolved]
